FAERS Safety Report 9106905 (Version 2)
Quarter: 2013Q1

REPORT INFORMATION
  Report Type: Spontaneous
  Country: US (occurrence: US)
  Receive Date: 20130222
  Receipt Date: 20130222
  Transmission Date: 20140127
  Serious: Yes (Other)
  Sender: FDA-Public Use
  Company Number: US-TEVA-344938USA

PATIENT
  Age: 85 None
  Sex: Female
  Weight: 56.3 kg

DRUGS (3)
  1. TREANDA [Suspect]
     Indication: NON-HODGKIN^S LYMPHOMA
     Dosage: UNKNOWN DOSE EVERY 28 DAYS
     Route: 042
     Dates: start: 201201, end: 201205
  2. BENADRYL [Concomitant]
     Indication: NAUSEA
     Dosage: UNKNOWN
     Route: 042
     Dates: end: 201205
  3. RITUXAN [Concomitant]
     Indication: NON-HODGKIN^S LYMPHOMA
     Dosage: UNKNOWN
     Dates: start: 201201, end: 201205

REACTIONS (2)
  - White blood cell count decreased [Not Recovered/Not Resolved]
  - Blister [Not Recovered/Not Resolved]
